FAERS Safety Report 5818753-4 (Version None)
Quarter: 2008Q3

REPORT INFORMATION
  Report Type: 
  Country: None (occurrence: None)
  Receive Date: 20080718
  Receipt Date: 20080718
  Transmission Date: 20090109
  Serious: Yes (Life-Threatening, Disabling, Other)
  Sender: FDA-Public Use
  Company Number: None

PATIENT
  Age: 77 Year
  Sex: Male
  Weight: 73.4827 kg

DRUGS (7)
  1. LISINOPRIL AND HYDROCHLOROTHIAZIDE [Suspect]
     Indication: HYPERTENSION
     Dosage: ONE TABLET BY MOUTH EVERY DAY
     Route: 048
  2. ATENOLOL [Suspect]
     Indication: HYPERTENSION
     Dosage: ONE TABLET BY MOUTH EVERY DAY
     Route: 048
  3. AMLODIPINE BESYLATE [Suspect]
     Indication: HYPERTENSION
     Dosage: ONE TABLET BY MOUTH EVERY DAY
     Route: 048
  4. AZOR [Suspect]
     Indication: HYPERTENSION
     Dosage: ONE TABLET BY MOUTH EVERY DAY
     Route: 048
  5. MECLIZINE [Concomitant]
  6. AMOXICILLIN AND CLAVULANATE POTASSIUM [Suspect]
  7. FLUTICASONE PROPIONATE [Concomitant]

REACTIONS (5)
  - BALANCE DISORDER [None]
  - DIZZINESS [None]
  - HEADACHE [None]
  - VERTIGO [None]
  - VISION BLURRED [None]
